FAERS Safety Report 20032222 (Version 1)
Quarter: 2021Q4

REPORT INFORMATION
  Report Type: Spontaneous
  Country: US (occurrence: US)
  Receive Date: 20211103
  Receipt Date: 20211103
  Transmission Date: 20220303
  Serious: Yes (Death)
  Sender: FDA-Public Use
  Company Number: US-BRISTOL-MYERS SQUIBB COMPANY-BMS-2021-115706

PATIENT
  Age: 98 Year
  Sex: Female
  Weight: 59.864 kg

DRUGS (1)
  1. ELIQUIS [Suspect]
     Active Substance: APIXABAN
     Indication: Cardiac failure congestive
     Dosage: 5 MILLIGRAM, BID
     Route: 048
     Dates: start: 2019

REACTIONS (2)
  - Cardiac disorder [Fatal]
  - Intentional product use issue [Unknown]

NARRATIVE: CASE EVENT DATE: 20190101
